FAERS Safety Report 24157599 (Version 1)
Quarter: 2024Q3

REPORT INFORMATION
  Report Type: Spontaneous
  Country: US (occurrence: None)
  Receive Date: 20240731
  Receipt Date: 20240731
  Transmission Date: 20241016
  Serious: Yes (Hospitalization)
  Sender: Public
  Company Number: None

PATIENT
  Age: 83 Year
  Sex: Male
  Weight: 103 kg

DRUGS (2)
  1. TAXOTERE [Suspect]
     Active Substance: DOCETAXEL
     Dates: start: 20240711, end: 20240718
  2. GEMCITABINE HYDROCHLORIDE [Concomitant]
     Active Substance: GEMCITABINE HYDROCHLORIDE

REACTIONS (6)
  - Septic shock [None]
  - Urinary tract infection [None]
  - Pyelonephritis [None]
  - Hypotension [None]
  - Fatigue [None]
  - Abdominal pain [None]

NARRATIVE: CASE EVENT DATE: 20240725
